FAERS Safety Report 10816641 (Version 2)
Quarter: 2015Q1

REPORT INFORMATION
  Report Type: Spontaneous
  Country: US (occurrence: US)
  Receive Date: 20150218
  Receipt Date: 20150316
  Transmission Date: 20150721
  Serious: No
  Sender: FDA-Public Use
  Company Number: US-ROXANE LABORATORIES, INC.-2015-RO-00282RO

PATIENT
  Sex: Male

DRUGS (1)
  1. PROPANTHELINE [Suspect]
     Active Substance: PROPANTHELINE
     Indication: HYPERHIDROSIS
     Dosage: 60 MG
     Route: 048

REACTIONS (2)
  - Drug ineffective [Unknown]
  - Product quality issue [Unknown]
